FAERS Safety Report 6784406-1 (Version None)
Quarter: 2010Q2

REPORT INFORMATION
  Report Type: 
  Country: None (occurrence: None)
  Receive Date: 20100622
  Receipt Date: 20100611
  Transmission Date: 20101027
  Serious: Yes (Hospitalization)
  Sender: FDA-Public Use
  Company Number: US-JNJFOC-20100505893

PATIENT
  Age: 6 Month
  Weight: 8.16 kg

DRUGS (4)
  1. CONCENTRATED TYLENOL INFANT DROPS [Suspect]
     Route: 048
  2. CONCENTRATED TYLENOL INFANT DROPS [Suspect]
     Indication: EAR INFECTION
     Dosage: 1 TEASPOON EVERY 12 HOURS
     Route: 048
  3. CONCENTRATED MOTRIN INFANTS DROPS [Suspect]
  4. CONCENTRATED MOTRIN INFANTS DROPS [Suspect]
     Indication: EAR INFECTION

REACTIONS (4)
  - DEHYDRATION [None]
  - DIARRHOEA [None]
  - PRODUCT QUALITY ISSUE [None]
  - VOMITING [None]
